FAERS Safety Report 8722297 (Version 2)
Quarter: 2013Q1

REPORT INFORMATION
  Report Type: Spontaneous
  Country: US (occurrence: US)
  Receive Date: 20120814
  Receipt Date: 20130214
  Transmission Date: 20140127
  Serious: Yes (Other)
  Sender: FDA-Public Use
  Company Number: US-BAYER-2012-081432

PATIENT
  Age: 60 Year
  Sex: Female
  Weight: 92.52 kg

DRUGS (11)
  1. TRASYLOL [Suspect]
     Indication: AORTIC VALVE REPLACEMENT
     Dosage: 200ML LOAD FOLLOWED BY 50CC/HR CONTINUOUS INFUSION
     Route: 042
     Dates: start: 20040722, end: 20040722
  2. TRASYLOL [Suspect]
     Indication: AORTIC VALVE REPLACEMENT
     Dosage: 1 ML, UNK
  3. VASERETIC [Concomitant]
     Dosage: 10-25MG
     Dates: start: 20040409, end: 20040721
  4. FENTANYL [Concomitant]
     Dosage: UNK
     Dates: start: 20040722, end: 20040722
  5. ISOFLURANE [Concomitant]
     Dosage: UNK
     Dates: start: 20040722, end: 20040722
  6. LEVOPHED [Concomitant]
     Dosage: UNK
     Dates: start: 20040722
  7. LIDOCAINE [Concomitant]
     Dosage: UNK
     Dates: start: 20040722, end: 20040722
  8. MANNITOL [Concomitant]
     Dosage: 25 G, UNK
     Dates: start: 20040722, end: 20040722
  9. PAVULON [Concomitant]
     Dosage: UNK
     Dates: start: 20040722, end: 20040722
  10. VERSED [Concomitant]
     Dosage: UNK
     Dates: start: 20040722, end: 20040722
  11. PRIMACOR [Concomitant]
     Dosage: UNK
     Dates: start: 20040722

REACTIONS (12)
  - Multi-organ failure [None]
  - Renal failure [Recovered/Resolved]
  - Renal impairment [Recovered/Resolved]
  - Renal injury [None]
  - Emotional distress [None]
  - Stress [None]
  - Anxiety [None]
  - Fear [None]
  - Pain [None]
  - Anhedonia [None]
  - Anxiety [None]
  - Off label use [None]
